FAERS Safety Report 16599508 (Version 1)
Quarter: 2019Q3

REPORT INFORMATION
  Report Type: Spontaneous
  Country: FR (occurrence: FR)
  Receive Date: 20190719
  Receipt Date: 20190719
  Transmission Date: 20191004
  Serious: Yes (Death)
  Sender: FDA-Public Use
  Company Number: FR-TEVA-2019-FR-1079742

PATIENT
  Age: 94 Year
  Sex: Male

DRUGS (7)
  1. LERCAN 10 MG, COMPRIME PELLICULE SECABLE [Concomitant]
     Active Substance: LERCANIDIPINE HYDROCHLORIDE
     Route: 048
  2. FUROSEMIDE. [Concomitant]
     Active Substance: FUROSEMIDE
     Route: 048
  3. DIFFU K, GELULE [Concomitant]
     Active Substance: POTASSIUM CHLORIDE
     Route: 048
     Dates: end: 20190603
  4. ATORVASTATINE [Concomitant]
     Active Substance: ATORVASTATIN
     Route: 048
  5. CLOPIDOGREL (CHLORHYDRATE DE) [Suspect]
     Active Substance: CLOPIDOGREL HYDROCHLORIDE
     Route: 048
     Dates: end: 20190603
  6. PREVISCAN 20 MG, COMPRIME SECABLE [Suspect]
     Active Substance: FLUINDIONE
     Route: 048
  7. NEBIVOLOL. [Concomitant]
     Active Substance: NEBIVOLOL
     Route: 048

REACTIONS (1)
  - Traumatic haemothorax [Fatal]

NARRATIVE: CASE EVENT DATE: 20190603
